FAERS Safety Report 18435972 (Version 1)
Quarter: 2020Q4

REPORT INFORMATION
  Report Type: Spontaneous
  Country: US (occurrence: US)
  Receive Date: 20201028
  Receipt Date: 20201028
  Transmission Date: 20210114
  Serious: Yes (Other)
  Sender: FDA-Public Use
  Company Number: US-GLENMARK PHARMACEUTICALS-2020GMK050122

PATIENT

DRUGS (1)
  1. ASHLYNA [Suspect]
     Active Substance: ETHINYL ESTRADIOL\LEVONORGESTREL
     Indication: MENSTRUAL DISORDER
     Dosage: 1 DOSAGE FORM, OD; START DATE: ABOUT 2 YEARS AGO
     Route: 048

REACTIONS (5)
  - Inappropriate schedule of product administration [Unknown]
  - Pregnancy on oral contraceptive [Not Recovered/Not Resolved]
  - Metrorrhagia [Unknown]
  - Haemorrhage in pregnancy [Not Recovered/Not Resolved]
  - Product use in unapproved indication [Unknown]

NARRATIVE: CASE EVENT DATE: 20201011
